FAERS Safety Report 8402321-4 (Version None)
Quarter: 2012Q2

REPORT INFORMATION
  Report Type: 
  Country: None (occurrence: None)
  Receive Date: 20120529
  Receipt Date: 20040105
  Transmission Date: 20120825
  Serious: Yes (Hospitalization)
  Sender: FDA-Public Use
  Company Number: 02100-JPN-04-0007

PATIENT
  Age: 87 Year
  Sex: Female

DRUGS (2)
  1. MUCOSTA (REBAMIPIDE) TABLET [Concomitant]
  2. PLETAL [Suspect]
     Indication: CEREBRAL INFARCTION
     Dosage: 50 MG, BID, ORAL
     Route: 048
     Dates: start: 20030717, end: 20031218

REACTIONS (6)
  - COMA [None]
  - APALLIC SYNDROME [None]
  - DEPRESSED LEVEL OF CONSCIOUSNESS [None]
  - CEREBRAL HAEMORRHAGE [None]
  - HEMIPLEGIA [None]
  - AGITATION [None]
